FAERS Safety Report 22125738 (Version 1)
Quarter: 2023Q1

REPORT INFORMATION
  Report Type: Spontaneous
  Country: CA (occurrence: CA)
  Receive Date: 20230322
  Receipt Date: 20230322
  Transmission Date: 20230417
  Serious: Yes (Death)
  Sender: FDA-Public Use
  Company Number: CA-ANIPHARMA-2023-CA-000607

PATIENT
  Age: 93 Year
  Sex: Male

DRUGS (3)
  1. CANDESARTAN [Suspect]
     Active Substance: CANDESARTAN
     Indication: Product used for unknown indication
     Route: 065
  2. FUROSEMIDE [Suspect]
     Active Substance: FUROSEMIDE
     Route: 048
  3. NIFEDIPINE [Suspect]
     Active Substance: NIFEDIPINE
     Route: 048

REACTIONS (7)
  - Acute pulmonary oedema [Fatal]
  - Arrhythmia [Fatal]
  - Hypertensive crisis [Fatal]
  - Myocardial infarction [Fatal]
  - Myocardial ischaemia [Fatal]
  - Pleural effusion [Fatal]
  - Pulmonary embolism [Fatal]
